FAERS Safety Report 7761184-0 (Version None)
Quarter: 2011Q3

REPORT INFORMATION
  Report Type: 
  Country: None (occurrence: None)
  Receive Date: 20110915
  Receipt Date: 20110907
  Transmission Date: 20111222
  Serious: Yes (Hospitalization)
  Sender: FDA-Public Use
  Company Number: 2011SP039850

PATIENT
  Age: 76 Year
  Sex: Male

DRUGS (6)
  1. BENDROFLUAZIDE (BENDROFLUMETHIAZIDE) [Suspect]
     Indication: HYPERTENSION
  2. AMLODIPINE [Concomitant]
  3. VALSARTAN [Concomitant]
  4. MIRTAZAPINE [Suspect]
     Indication: PRODUCT USED FOR UNKNOWN INDICATION
     Dosage: 15,45,60,30 MG
  5. EFFEXOR XR [Suspect]
     Indication: PRODUCT USED FOR UNKNOWN INDICATION
     Dosage: 75 MG
  6. LORAZEPAM [Concomitant]

REACTIONS (5)
  - FALL [None]
  - HEAD INJURY [None]
  - SYNCOPE [None]
  - BLOOD SODIUM DECREASED [None]
  - URINARY HESITATION [None]
